FAERS Safety Report 10150381 (Version 3)
Quarter: 2016Q1

REPORT INFORMATION
  Report Type: Spontaneous
  Country: CH (occurrence: CH)
  Receive Date: 20140502
  Receipt Date: 20160108
  Transmission Date: 20160525
  Serious: Yes (Life-Threatening, Hospitalization, Other)
  Sender: FDA-Public Use
  Company Number: CH-UCBSA-119774

PATIENT
  Age: 38 Year
  Sex: Male
  Weight: 95 kg

DRUGS (7)
  1. LAMICTAL [Suspect]
     Active Substance: LAMOTRIGINE
     Indication: EPILEPSY
     Dosage: 25 MG, ONCE DAILY (QD)
     Route: 048
     Dates: start: 20140226, end: 201403
  2. KEPPRA [Concomitant]
     Active Substance: LEVETIRACETAM
     Dosage: 1500 MG, 2X/DAY (BID)
     Route: 048
     Dates: start: 20140224, end: 20140417
  3. URBANYL [Concomitant]
     Active Substance: CLOBAZAM
     Indication: EPILEPSY
     Dosage: 5 MG, 4X/DAY (QID)
     Route: 048
     Dates: start: 201401
  4. LAMICTAL [Suspect]
     Active Substance: LAMOTRIGINE
     Dosage: 50 MG ONCE A DAY WHICH WAS STARTED IN MAR-2014 ALONG WITH 25 MG ONCE A DAY STARTED ON 26-FEB-2014
     Route: 048
     Dates: start: 201403, end: 20140411
  5. TRIAMCINOLON [Concomitant]
     Indication: RASH MACULO-PAPULAR
     Dosage: 2 DF, ONCE DAILY (QD)
     Route: 061
     Dates: start: 20140408
  6. PREDNISONE. [Concomitant]
     Active Substance: PREDNISONE
     Indication: RASH MACULO-PAPULAR
     Dosage: 50MG
     Route: 048
     Dates: start: 20140414, end: 20140414
  7. KEPPRA [Concomitant]
     Active Substance: LEVETIRACETAM
     Indication: EPILEPSY
     Dosage: 1000 MG, 2X/DAY (BID)
     Route: 048
     Dates: start: 201402, end: 201402

REACTIONS (9)
  - Normochromic normocytic anaemia [Not Recovered/Not Resolved]
  - Hepatocellular injury [Recovered/Resolved]
  - Blood lactate dehydrogenase increased [Recovering/Resolving]
  - Drug reaction with eosinophilia and systemic symptoms [Recovering/Resolving]
  - Rash maculo-papular [Recovering/Resolving]
  - Hypoalbuminaemia [Unknown]
  - Pyrexia [Recovered/Resolved]
  - Acute kidney injury [Recovered/Resolved]
  - Skin test positive [Recovered/Resolved]

NARRATIVE: CASE EVENT DATE: 201404
